FAERS Safety Report 9252755 (Version 1)
Quarter: 2013Q2

REPORT INFORMATION
  Report Type: Spontaneous
  Country: RU (occurrence: RU)
  Receive Date: 20130424
  Receipt Date: 20130424
  Transmission Date: 20140414
  Serious: Yes (Other)
  Sender: FDA-Public Use
  Company Number: RU-ASTRAZENECA-2013SE26665

PATIENT
  Age: 83 Year
  Sex: Female

DRUGS (8)
  1. BRILINTA [Suspect]
     Indication: MYOCARDIAL INFARCTION
     Route: 048
     Dates: start: 201303, end: 201303
  2. BRILINTA [Suspect]
     Indication: STENT PLACEMENT
     Route: 048
     Dates: start: 201303, end: 201303
  3. BRILINTA [Suspect]
     Indication: MYOCARDIAL INFARCTION
     Route: 048
     Dates: start: 201303
  4. BRILINTA [Suspect]
     Indication: STENT PLACEMENT
     Route: 048
     Dates: start: 201303
  5. ASPIRIN [Concomitant]
     Indication: MYOCARDIAL INFARCTION
     Route: 048
  6. ASPIRIN [Concomitant]
     Indication: STENT PLACEMENT
     Route: 048
  7. CLEXANE [Concomitant]
     Indication: MYOCARDIAL INFARCTION
  8. CLEXANE [Concomitant]
     Indication: STENT PLACEMENT

REACTIONS (2)
  - Catheter site haematoma [Unknown]
  - Haematoma [Unknown]
